FAERS Safety Report 19692359 (Version 1)
Quarter: 2021Q3

REPORT INFORMATION
  Report Type: Spontaneous
  Country: JP (occurrence: JP)
  Receive Date: 20210812
  Receipt Date: 20210812
  Transmission Date: 20211014
  Serious: Yes (Other)
  Sender: FDA-Public Use
  Company Number: JP-BRISTOL-MYERS SQUIBB COMPANY-BMS-2021-079437

PATIENT
  Age: 70 Year
  Sex: Female
  Weight: 41.5 kg

DRUGS (4)
  1. OPDIVO [Suspect]
     Active Substance: NIVOLUMAB
     Indication: GASTRIC CANCER
     Dosage: 360 MG
     Route: 041
  2. ANAMORELIN. [Suspect]
     Active Substance: ANAMORELIN
     Indication: CACHEXIA
     Dosage: 100 MILLIGRAM, QD
     Route: 048
     Dates: start: 20210506, end: 20210606
  3. TAKECAB [Concomitant]
     Active Substance: VONOPRAZAN FUMARATE
     Indication: PRODUCT USED FOR UNKNOWN INDICATION
     Dosage: 20 MILLIGRAM, QD
     Route: 065
  4. CRAVIT [Concomitant]
     Active Substance: LEVOFLOXACIN
     Indication: PRODUCT USED FOR UNKNOWN INDICATION
     Dosage: 500 MILLIGRAM, QD
     Route: 065
     Dates: start: 20210506, end: 20210510

REACTIONS (2)
  - Neutrophil count decreased [Recovered/Resolved]
  - White blood cell count decreased [Recovered/Resolved]

NARRATIVE: CASE EVENT DATE: 20210506
